FAERS Safety Report 11596623 (Version 1)
Quarter: 2015Q4

REPORT INFORMATION
  Report Type: Spontaneous
  Country: DE (occurrence: DE)
  Receive Date: 20151006
  Receipt Date: 20151006
  Transmission Date: 20160304
  Serious: Yes (Life-Threatening)
  Sender: FDA-Public Use
  Company Number: DE-SA-2015SA151913

PATIENT
  Age: 64 Year
  Sex: Male
  Weight: 105 kg

DRUGS (2)
  1. OXALIPLATIN. [Suspect]
     Active Substance: OXALIPLATIN
     Dosage: APPLICATION FROM 9:15 TO 9:18
     Route: 042
     Dates: start: 20150924
  2. OXALIPLATIN. [Suspect]
     Active Substance: OXALIPLATIN
     Dosage: APPLICATION FROM 9:15 TO 9:18
     Route: 065

REACTIONS (3)
  - Bronchospasm [Not Recovered/Not Resolved]
  - Hypotension [Not Recovered/Not Resolved]
  - Respiratory distress [Not Recovered/Not Resolved]

NARRATIVE: CASE EVENT DATE: 20150924
